FAERS Safety Report 16191248 (Version 1)
Quarter: 2019Q2

REPORT INFORMATION
  Report Type: Spontaneous
  Country: GB (occurrence: GB)
  Receive Date: 20190412
  Receipt Date: 20190412
  Transmission Date: 20190711
  Serious: Yes (Life-Threatening)
  Sender: FDA-Public Use
  Company Number: GB-ASTRAZENECA-2019SE56118

PATIENT
  Age: 35 Year
  Sex: Male

DRUGS (1)
  1. ESOMEPRAZOLE SODIUM. [Suspect]
     Active Substance: ESOMEPRAZOLE SODIUM
     Dosage: 20.0MG UNKNOWN
     Route: 042
     Dates: end: 20190207

REACTIONS (2)
  - Vomiting [Recovered/Resolved]
  - Abnormal loss of weight [Recovered/Resolved]
